FAERS Safety Report 22608177 (Version 2)
Quarter: 2023Q4

REPORT INFORMATION
  Report Type: Report from Study
  Country: US (occurrence: US)
  Receive Date: 20230616
  Receipt Date: 20231102
  Transmission Date: 20240110
  Serious: Yes (Other)
  Sender: FDA-Public Use
  Company Number: US-ABBVIE-5284458

PATIENT
  Age: 63 Year
  Sex: Female
  Weight: 68 kg

DRUGS (1)
  1. SKYRIZI [Suspect]
     Active Substance: RISANKIZUMAB-RZAA
     Indication: Crohn^s disease
     Dosage: SKYRIZI CARTRIDGE (150MG/ML) 360MG/2.4M?FORM STRENGTH: 150 MG
     Route: 058
     Dates: start: 20220818

REACTIONS (6)
  - Squamous cell carcinoma of skin [Unknown]
  - Diarrhoea [Recovering/Resolving]
  - Squamous cell carcinoma [Recovered/Resolved]
  - Suture rupture [Recovering/Resolving]
  - General physical health deterioration [Unknown]
  - Gastrointestinal disorder [Unknown]

NARRATIVE: CASE EVENT DATE: 20230301
